FAERS Safety Report 5700522-7 (Version None)
Quarter: 2008Q2

REPORT INFORMATION
  Report Type: 
  Country: None (occurrence: None)
  Receive Date: 20080408
  Receipt Date: 20080408
  Transmission Date: 20081010
  Serious: No
  Sender: FDA-Public Use
  Company Number: None

PATIENT
  Age: 55 Year
  Sex: Female
  Weight: 58.9676 kg

DRUGS (1)
  1. HALFLYTELY + BISCOLDYL TABLETS   BRAINTREE [Suspect]
     Indication: COLONOSCOPY
     Dosage: 2 TABS  5MG/ 1-2 LITER BOTTLE
     Dates: start: 20080406, end: 20080406

REACTIONS (4)
  - CHANGE OF BOWEL HABIT [None]
  - CHILLS [None]
  - HEADACHE [None]
  - VOMITING [None]
